FAERS Safety Report 17807266 (Version 1)
Quarter: 2020Q2

REPORT INFORMATION
  Report Type: Spontaneous
  Country: GB (occurrence: GB)
  Receive Date: 20200520
  Receipt Date: 20200520
  Transmission Date: 20200714
  Serious: Yes (Other)
  Sender: FDA-Public Use
  Company Number: GB-TEVA-2020-GB-1236509

PATIENT
  Age: 88 Year
  Sex: Female
  Weight: 68 kg

DRUGS (24)
  1. CETIRIZINE [Concomitant]
     Active Substance: CETIRIZINE HYDROCHLORIDE
     Dosage: 1 DOSAGE FORMS
     Dates: start: 20190521, end: 20200218
  2. HYLO-FORTE [Concomitant]
     Active Substance: HYALURONATE SODIUM
     Dosage: USE AS DIRECTED
     Dates: start: 20190802
  3. CAPSAICIN. [Concomitant]
     Active Substance: CAPSAICIN
     Dosage: APPLY, 4 DOSAGE FORMS
     Dates: start: 20190521
  4. AMLODIPINE [Concomitant]
     Active Substance: AMLODIPINE BESYLATE
     Dosage: 1 DOSAGE FORMS
     Dates: start: 20190521
  5. AMOXICILLIN. [Concomitant]
     Active Substance: AMOXICILLIN
     Dosage: 3 DOSAGE FORMS
     Dates: start: 20200426
  6. FOLIC ACID. [Concomitant]
     Active Substance: FOLIC ACID
     Dosage: 1 DOSAGE FORMS
     Dates: start: 20190521
  7. ROSUVASTATIN. [Concomitant]
     Active Substance: ROSUVASTATIN
     Dosage: 1 DOSAGE FORMS
     Dates: start: 20190521
  8. EUMOVATE [Concomitant]
     Active Substance: CLOBETASONE BUTYRATE
     Dosage: APPLY 1-2 TIMES/DAY
     Dates: start: 20190521, end: 20200218
  9. NITROFURANTOIN. [Concomitant]
     Active Substance: NITROFURANTOIN
     Dosage: 2 DOSAGE FORMS
     Dates: start: 20200210, end: 20200309
  10. MACROGOL [Concomitant]
     Active Substance: POLYETHYLENE GLYCOLS
     Dosage: TAKE 1 TO 4 SATCHETS WITH PLENTY OF FLUID TO TR...
     Dates: start: 20190521
  11. BISACODYL. [Concomitant]
     Active Substance: BISACODYL
     Indication: CONSTIPATION
     Dosage: TAKE 1 OR 2 IN THE EVENING
     Dates: start: 20190521, end: 20200218
  12. PRIMIDONE. [Concomitant]
     Active Substance: PRIMIDONE
     Dosage: 1 DOSAGE FORMS DAILY; TAKE AT NIGHT AS ADVISED BY SPECIALIST,
     Dates: start: 20191119
  13. LIDOCAINE HYDROCHLORIDE. [Concomitant]
     Active Substance: LIDOCAINE HYDROCHLORIDE
     Dosage: USE AS DIRECTED
     Dates: start: 20200420
  14. CLOPIDOGREL [Concomitant]
     Active Substance: CLOPIDOGREL BISULFATE
     Dosage: 1 DOSAGE FORMS
     Dates: start: 20190521
  15. PROPRANOLOL [Concomitant]
     Active Substance: PROPRANOLOL HYDROCHLORIDE
     Dosage: 1 DOSAGE FORMS
     Dates: start: 20190521
  16. OVESTIN [Concomitant]
     Active Substance: ESTRIOL
     Dosage: APPLY AT NIGHT, 2 DOSAGE FORMS
     Dates: start: 20190521
  17. LACTULOSE. [Concomitant]
     Active Substance: LACTULOSE
     Dosage: 15 ML DAILY; AT NIGHT
     Dates: start: 20190521
  18. TRIMETHOPRIM. [Suspect]
     Active Substance: TRIMETHOPRIM
     Dosage: 400 MG
     Route: 065
     Dates: start: 20200424
  19. COLECALCIFEROL [Concomitant]
     Active Substance: CHOLECALCIFEROL
     Dosage: AFTER INITIAL 6 WEEKS, 1 DOSAGE FORMS
     Dates: start: 20190521
  20. DERMOL [Concomitant]
     Active Substance: BENZALKONIUM CHLORIDE\CHLORHEXIDINE HYDROCHLORIDE\ISOPROPYL MYRISTATE\PARAFFIN
     Dosage: USE AS DIRECTED
     Dates: start: 20190521
  21. INSTILLAGEL [Concomitant]
     Active Substance: CHLORHEXIDINE GLUCONATE\LIDOCAINE HYDROCHLORIDE
     Dosage: USE AS DIRECTED
     Dates: start: 20200420
  22. CROTAMITON [Concomitant]
     Active Substance: CROTAMITON
     Dosage: USE AS DIRECTED
     Dates: start: 20200422
  23. HYDROXYCHLOROQUINE SULFATE. [Concomitant]
     Active Substance: HYDROXYCHLOROQUINE SULFATE
     Dosage: 3 DOSAGE FORMS
     Dates: start: 20190521
  24. PARACETAMOL [Concomitant]
     Active Substance: ACETAMINOPHEN
     Dosage: TAKE 1 OR 2  4 TIMES/DAY
     Dates: start: 20190521

REACTIONS (2)
  - Lip ulceration [Unknown]
  - Urticaria [Recovering/Resolving]

NARRATIVE: CASE EVENT DATE: 20200426
